FAERS Safety Report 6162908-9 (Version None)
Quarter: 2009Q2

REPORT INFORMATION
  Report Type: 
  Country: None (occurrence: None)
  Receive Date: 20090421
  Receipt Date: 20090202
  Transmission Date: 20091009
  Serious: No
  Sender: FDA-Public Use
  Company Number: US-ASTRAZENECA-2009UW02929

PATIENT
  Age: 49 Year
  Sex: Female
  Weight: 77.1 kg

DRUGS (6)
  1. TOPROL-XL [Suspect]
     Dosage: UNKNOWN
     Route: 048
     Dates: start: 20070101
  2. STRATTERA [Concomitant]
  3. WELLBUTRIN [Concomitant]
  4. ASPIRIN [Concomitant]
  5. CLARITIN [Concomitant]
  6. MAXALL [Concomitant]

REACTIONS (1)
  - MIGRAINE [None]
